FAERS Safety Report 7492881-2 (Version None)
Quarter: 2011Q2

REPORT INFORMATION
  Report Type: 
  Country: None (occurrence: None)
  Receive Date: 20110520
  Receipt Date: 20110512
  Transmission Date: 20111010
  Serious: Yes (Hospitalization)
  Sender: FDA-Public Use
  Company Number: US-BIOGENIDEC-2011BI013815

PATIENT
  Age: 50 Year
  Sex: Female

DRUGS (1)
  1. TYSABRI [Suspect]
     Indication: MULTIPLE SCLEROSIS
     Route: 042
     Dates: start: 20090320

REACTIONS (6)
  - SEPSIS [None]
  - UHTHOFF'S PHENOMENON [None]
  - HEADACHE [None]
  - HERPES ZOSTER [None]
  - DEVICE RELATED INFECTION [None]
  - GENERAL SYMPTOM [None]
